FAERS Safety Report 9723019 (Version 1)
Quarter: 2013Q4

REPORT INFORMATION
  Report Type: Spontaneous
  Country: ZA (occurrence: ZA)
  Receive Date: 20131202
  Receipt Date: 20131202
  Transmission Date: 20140711
  Serious: Yes (Life-Threatening)
  Sender: FDA-Public Use
  Company Number: ZA-ELI_LILLY_AND_COMPANY-ZA201311007105

PATIENT
  Sex: Female

DRUGS (2)
  1. CYMGEN [Suspect]
     Indication: ARTHRITIS
     Dosage: UNK, UNKNOWN
     Route: 065
  2. METOTREXATE [Concomitant]
     Indication: PRODUCT USED FOR UNKNOWN INDICATION
     Dosage: UNK, UNKNOWN
     Route: 065

REACTIONS (1)
  - Pulmonary thrombosis [Unknown]
